FAERS Safety Report 25980805 (Version 2)
Quarter: 2025Q4

REPORT INFORMATION
  Report Type: Spontaneous
  Country: US (occurrence: US)
  Receive Date: 20251030
  Receipt Date: 20251204
  Transmission Date: 20260118
  Serious: No
  Sender: BAYER HEALTHCARE LLC
  Company Number: US-BAYER-2025A142737

PATIENT
  Age: 71 Year
  Sex: Female

DRUGS (1)
  1. CLARITIN LIQUI-GELS [Suspect]
     Active Substance: LORATADINE
     Dosage: 1 DF, QD
     Route: 048
     Dates: start: 202510, end: 20251020

REACTIONS (3)
  - Oral discomfort [Recovered/Resolved]
  - Erythema [Recovered/Resolved]
  - Product contamination physical [None]

NARRATIVE: CASE EVENT DATE: 20251001
